FAERS Safety Report 6698717-1 (Version None)
Quarter: 2010Q2

REPORT INFORMATION
  Report Type: 
  Country: None (occurrence: None)
  Receive Date: 20100427
  Receipt Date: 20090818
  Transmission Date: 20101027
  Serious: No
  Sender: FDA-Public Use
  Company Number: US-ASTRAZENECA-2009SE08604

PATIENT
  Age: 668 Month
  Sex: Female

DRUGS (3)
  1. ZOMIG [Suspect]
     Route: 048
     Dates: start: 20050101
  2. TOPAMAX [Concomitant]
     Dates: start: 20090430, end: 20090701
  3. INDERAL [Concomitant]
     Dates: start: 20090701

REACTIONS (1)
  - MIGRAINE [None]
